FAERS Safety Report 20656744 (Version 1)
Quarter: 2022Q1

REPORT INFORMATION
  Report Type: Spontaneous
  Country: US (occurrence: US)
  Receive Date: 20220331
  Receipt Date: 20220331
  Transmission Date: 20220424
  Serious: No
  Sender: FDA-Public Use
  Company Number: US-Calliditas-2022CAL00018

PATIENT
  Age: 52 Year
  Sex: Female
  Weight: 115 kg

DRUGS (1)
  1. TARPEYO [Suspect]
     Active Substance: BUDESONIDE
     Indication: IgA nephropathy
     Dosage: 16 MG ONCE DAILY
     Route: 050
     Dates: start: 20220304

REACTIONS (3)
  - Pruritus [Unknown]
  - Somnolence [Unknown]
  - Intentional product misuse [Unknown]
